FAERS Safety Report 7064569-3 (Version None)
Quarter: 2010Q4

REPORT INFORMATION
  Report Type: 
  Country: None (occurrence: None)
  Receive Date: 20101027
  Receipt Date: 20101018
  Transmission Date: 20110411
  Serious: Yes (Other)
  Sender: FDA-Public Use
  Company Number: PHHY2010JP69959

PATIENT

DRUGS (2)
  1. ZOMETA [Suspect]
     Indication: METASTASES TO BONE
     Route: 041
  2. STEROIDS NOS [Suspect]

REACTIONS (3)
  - OSTEONECROSIS OF JAW [None]
  - SWELLING [None]
  - TOOTH EXTRACTION [None]
